FAERS Safety Report 7079985 (Version 2)
Quarter: 2012Q4

REPORT INFORMATION
  Report Type: Spontaneous
  Country: US (occurrence: None)
  Receive Date: 20090806
  Receipt Date: 20121010
  Transmission Date: 20130627
  Serious: Yes (Death, Hospitalization)
  Sender: FDA-Public Use
  Company Number: 2009S1006186

PATIENT
  Age: 74 Year
  Sex: Female

DRUGS (5)
  1. SODIUM PHOSPHATE, DIBASIC\SODIUM PHOSPHATE, MONOBASIC, ANHYDROUS [Suspect]
     Indication: BOWEL PREPARATION
     Dosage: PO
     Route: 048
     Dates: start: 20081210, end: 20081210
  2. SYNTHROID [Concomitant]
  3. PREVACID [Concomitant]
  4. MULTIVITAMIN  /00097801/ [Concomitant]
  5. ANTIHYPERTENSIVES [Concomitant]

REACTIONS (12)
  - Abdominal pain upper [None]
  - Gastrointestinal motility disorder [None]
  - Loss of consciousness [None]
  - Asthma [None]
  - Abdominal discomfort [None]
  - Respiratory failure [None]
  - Sepsis [None]
  - Multi-organ failure [None]
  - Renal failure acute [None]
  - Cardiac arrest [None]
  - Metabolic acidosis [None]
  - Hypertension [None]
